FAERS Safety Report 4273276-1 (Version None)
Quarter: 2004Q1

REPORT INFORMATION
  Report Type: 
  Country: None (occurrence: None)
  Receive Date: 20040116
  Receipt Date: 20040108
  Transmission Date: 20041129
  Serious: Yes (Hospitalization)
  Sender: FDA-Public Use
  Company Number: WAES 0401USA00625

PATIENT
  Age: 64 Year
  Sex: Female

DRUGS (3)
  1. FOSAMAX [Suspect]
     Indication: OSTEOPOROSIS
     Route: 048
     Dates: start: 20031016, end: 20031220
  2. DOSS (ALFACALCIDOL) [Concomitant]
     Indication: OSTEOPOROSIS
     Dates: start: 20031016, end: 20031220
  3. CALCIUM ASPARTATE [Concomitant]
     Indication: OSTEOPOROSIS
     Dates: start: 20031016, end: 20031220

REACTIONS (4)
  - HAEMATEMESIS [None]
  - HEPATIC CIRRHOSIS [None]
  - OESOPHAGEAL ULCER [None]
  - REFLUX OESOPHAGITIS [None]
